FAERS Safety Report 21793584 (Version 1)
Quarter: 2022Q4

REPORT INFORMATION
  Report Type: Spontaneous
  Country: US (occurrence: None)
  Receive Date: 20221229
  Receipt Date: 20221229
  Transmission Date: 20230113
  Serious: Yes (Hospitalization)
  Sender: FDA-Public Use
  Company Number: US-MICRO LABS LIMITED-ML2022-06462

PATIENT
  Sex: Male

DRUGS (2)
  1. BUPROPION [Suspect]
     Active Substance: BUPROPION
     Indication: Euphoric mood
     Dosage: 8 TO 9 RANDOM COMBINATIONS OF 150-MG AND 300-MG TABLETS OF BUPROPION EVERY OTHER DAY FOR THE PAST 3
  2. BUPROPION [Suspect]
     Active Substance: BUPROPION
     Dosage: 8 TO 9 RANDOM COMBINATIONS OF 150-MG AND 300-MG TABLETS OF BUPROPION EVERY OTHER DAY FOR THE PAST 3

REACTIONS (5)
  - Hyponatraemia [Recovered/Resolved]
  - Drug abuse [Unknown]
  - Psychotic disorder [Unknown]
  - Incorrect route of product administration [Unknown]
  - Inappropriate schedule of product administration [Unknown]
